FAERS Safety Report 4726153-3 (Version None)
Quarter: 2005Q3

REPORT INFORMATION
  Report Type: 
  Country: None (occurrence: None)
  Receive Date: 20050727
  Receipt Date: 20050725
  Transmission Date: 20060218
  Serious: Yes (Death)
  Sender: FDA-Public Use
  Company Number: US-JNJFOC-20050504228

PATIENT
  Age: 78 Year
  Sex: Female
  Weight: 56.5 kg

DRUGS (5)
  1. NATRECOR [Suspect]
     Dosage: 2 MCG/KG, CONTINUOUS INFUSION OF 0.01 MCG/KG/MIN.
     Route: 042
  2. NATRECOR [Suspect]
     Dosage: STANDARD DRIP CONCENTRATION (6MCG/ML)
     Route: 042
  3. VANCOMYCIN [Concomitant]
  4. FUROSEMIDE [Concomitant]
     Dosage: ADMINISTERED IN ER AT 10:30 HOURS.
     Route: 042
  5. FUROSEMIDE [Concomitant]
     Route: 042

REACTIONS (10)
  - CARDIAC FAILURE CONGESTIVE [None]
  - DRUG ADMINISTRATION ERROR [None]
  - ENDOCARDITIS BACTERIAL [None]
  - INJECTION SITE REACTION [None]
  - MITRAL VALVE INCOMPETENCE [None]
  - PHLEBITIS [None]
  - RENAL FAILURE CHRONIC [None]
  - SEPSIS [None]
  - SKIN NECROSIS [None]
  - STAPHYLOCOCCAL INFECTION [None]
